FAERS Safety Report 5978723-2 (Version None)
Quarter: 2008Q4

REPORT INFORMATION
  Report Type: 
  Country: None (occurrence: None)
  Receive Date: 20081204
  Receipt Date: 20081125
  Transmission Date: 20090506
  Serious: Yes (Hospitalization)
  Sender: FDA-Public Use
  Company Number: US-AMGEN-QUU320982

PATIENT
  Sex: Male

DRUGS (2)
  1. ENBREL [Suspect]
     Indication: RHEUMATOID ARTHRITIS
     Route: 058
     Dates: start: 20030201
  2. METHOTREXATE [Concomitant]
     Route: 048

REACTIONS (5)
  - ANKLE OPERATION [None]
  - ARTHRITIS INFECTIVE [None]
  - BURSA REMOVAL [None]
  - INJECTION SITE HAEMATOMA [None]
  - STAPHYLOCOCCAL INFECTION [None]
